FAERS Safety Report 9531607 (Version 3)
Quarter: 2013Q3

REPORT INFORMATION
  Report Type: Spontaneous
  Country: FR (occurrence: FR)
  Receive Date: 20130918
  Receipt Date: 20130924
  Transmission Date: 20140515
  Serious: Yes (Hospitalization)
  Sender: FDA-Public Use
  Company Number: FR-PFIZER INC-2013257470

PATIENT
  Age: 71 Year
  Sex: Male

DRUGS (6)
  1. TRIATEC [Suspect]
     Dosage: UNK
     Dates: end: 20130827
  2. EUPANTOL [Suspect]
     Dosage: UNK
     Dates: end: 20130827
  3. KARDEGIC [Suspect]
     Indication: PROPHYLAXIS
     Dosage: 75 MG EVERY DAY
     Dates: start: 201308
  4. BRILIQUE [Suspect]
     Indication: PROPHYLAXIS
     Dosage: UNK
     Route: 048
     Dates: start: 20130820
  5. CRESTOR [Concomitant]
  6. BISOPROLOL [Concomitant]

REACTIONS (2)
  - Thrombocytopenia [Recovered/Resolved]
  - Myocardial infarction [Unknown]
